FAERS Safety Report 5475022-2 (Version None)
Quarter: 2007Q4

REPORT INFORMATION
  Report Type: 
  Country: None (occurrence: None)
  Receive Date: 20071002
  Receipt Date: 20070924
  Transmission Date: 20080405
  Serious: Yes (Hospitalization, Disabling, Other)
  Sender: FDA-Public Use
  Company Number: US-ELI_LILLY_AND_COMPANY-US200709005450

PATIENT
  Age: 55 Year
  Sex: Female

DRUGS (3)
  1. HUMULIN N [Suspect]
     Dosage: 21 U, EACH MORNING
     Dates: start: 19940101
  2. HUMULIN N [Suspect]
     Dosage: 25 U, EACH EVENING
  3. HUMALOG [Suspect]
     Dosage: UNK, AS NEEDED
     Dates: start: 19940101

REACTIONS (4)
  - MYOCARDIAL INFARCTION [None]
  - NEUROPATHIC ARTHROPATHY [None]
  - NEUROPATHY PERIPHERAL [None]
  - SKIN ULCER [None]
